FAERS Safety Report 4699585-X (Version None)
Quarter: 2005Q2

REPORT INFORMATION
  Report Type: 
  Country: None (occurrence: None)
  Receive Date: 20050624
  Receipt Date: 20050610
  Transmission Date: 20051028
  Serious: Yes (Other)
  Sender: FDA-Public Use
  Company Number: 2005AP03301

PATIENT
  Age: 55 Year
  Sex: Male

DRUGS (6)
  1. ANAPEINE [Suspect]
     Indication: EPIDURAL ANAESTHESIA
     Route: 008
     Dates: start: 20050509
  2. ANAPEINE [Suspect]
     Dosage: EITHER GIVEN EVERY OTHER DAY OR ONCE IN 3 DAYS
     Route: 008
     Dates: start: 20050526
  3. LIDOCAINE [Concomitant]
     Indication: EPIDURAL ANAESTHESIA
     Route: 008
     Dates: start: 20041210
  4. LIDOCAINE [Concomitant]
     Route: 008
     Dates: start: 20041215
  5. LIDOCAINE [Concomitant]
     Route: 008
  6. ANAPEINE [Concomitant]
     Route: 008

REACTIONS (4)
  - CONVULSION [None]
  - DRUG EFFECT DECREASED [None]
  - LOSS OF CONSCIOUSNESS [None]
  - PARALYSIS [None]
